FAERS Safety Report 15824744 (Version 14)
Quarter: 2021Q1

REPORT INFORMATION
  Report Type: Other
  Country: DE (occurrence: DE)
  Receive Date: 20190115
  Receipt Date: 20210208
  Transmission Date: 20210419
  Serious: Yes (Other)
  Sender: FDA-Public Use
  Company Number: DE-ROCHE-2241158

PATIENT
  Age: 55 Year
  Sex: Male
  Weight: 88 kg

DRUGS (8)
  1. OCREVUS [Suspect]
     Active Substance: OCRELIZUMAB
     Indication: RELAPSING-REMITTING MULTIPLE SCLEROSIS
     Route: 042
     Dates: start: 20181105
  2. DEKRISTOL [Concomitant]
     Active Substance: CHOLECALCIFEROL
  3. FENISTIL [Concomitant]
     Active Substance: DIMETHINDENE
  4. OCREVUS [Suspect]
     Active Substance: OCRELIZUMAB
     Route: 042
     Dates: start: 20181119
  5. OCREVUS [Suspect]
     Active Substance: OCRELIZUMAB
     Route: 042
     Dates: start: 20190513
  6. OCREVUS [Suspect]
     Active Substance: OCRELIZUMAB
     Route: 042
     Dates: start: 20191111
  7. ACICLOVIR [Concomitant]
     Active Substance: ACYCLOVIR
  8. EXFORGE HCT [Concomitant]
     Active Substance: AMLODIPINE BESYLATE\HYDROCHLOROTHIAZIDE\VALSARTAN

REACTIONS (21)
  - Fatigue [Recovered/Resolved]
  - Tremor [Not Recovered/Not Resolved]
  - Liver function test increased [Recovering/Resolving]
  - Headache [Recovering/Resolving]
  - Nasopharyngitis [Recovered/Resolved]
  - Joint warmth [Recovered/Resolved]
  - Weight decreased [Recovered/Resolved]
  - Epstein-Barr virus infection [Unknown]
  - Chills [Recovered/Resolved]
  - Disorientation [Not Recovered/Not Resolved]
  - Blood potassium increased [Recovered/Resolved]
  - Cough [Not Recovered/Not Resolved]
  - Immunosuppression [Unknown]
  - C-reactive protein increased [Not Recovered/Not Resolved]
  - General physical health deterioration [Recovered/Resolved]
  - Headache [Recovered/Resolved]
  - Blood pressure fluctuation [Recovered/Resolved]
  - Epistaxis [Recovered/Resolved]
  - Blood pressure increased [Not Recovered/Not Resolved]
  - Balance disorder [Recovered/Resolved]
  - Joint swelling [Recovered/Resolved]

NARRATIVE: CASE EVENT DATE: 20181105
